FAERS Safety Report 5175591-6 (Version None)
Quarter: 2006Q4

REPORT INFORMATION
  Report Type: 
  Country: None (occurrence: None)
  Receive Date: 20061212
  Receipt Date: 20061212
  Transmission Date: 20070319
  Serious: No
  Sender: FDA-Public Use
  Company Number: None

PATIENT
  Age: 51 Year
  Sex: Female
  Weight: 62.1428 kg

DRUGS (2)
  1. BONIVA [Suspect]
     Indication: OSTEOPENIA
     Dosage: ONE 150-MG TABLET ONE TIME/MONTH PO
     Route: 048
     Dates: start: 20061010, end: 20061010
  2. BONIVA [Suspect]
     Indication: OSTEOPENIA
     Dosage: ONE 150-MG TABLET ONE TIME/MONTH PO
     Route: 048
     Dates: start: 20061108, end: 20061108

REACTIONS (6)
  - ACTIVITIES OF DAILY LIVING IMPAIRED [None]
  - ARTHRALGIA [None]
  - BONE PAIN [None]
  - JOINT RANGE OF MOTION DECREASED [None]
  - MUSCULOSKELETAL PAIN [None]
  - PAIN IN EXTREMITY [None]
